FAERS Safety Report 7153589-6 (Version None)
Quarter: 2010Q4

REPORT INFORMATION
  Report Type: 
  Country: None (occurrence: None)
  Receive Date: 20101208
  Receipt Date: 20101208
  Transmission Date: 20110411
  Serious: Yes (Hospitalization, Other)
  Sender: FDA-Public Use
  Company Number: None

PATIENT
  Age: 77 Year
  Sex: Female

DRUGS (7)
  1. REVLIMID [Suspect]
     Indication: MULTIPLE MYELOMA
     Dosage: 25MG DAILY X19D/28D ORALLY
     Route: 048
     Dates: start: 20090301, end: 20100101
  2. REVLIMID [Suspect]
     Indication: MULTIPLE MYELOMA
     Dosage: 25MG DAILY X19D/28D ORALLY
     Route: 048
     Dates: start: 20100520
  3. REVLIMID [Suspect]
     Indication: MULTIPLE MYELOMA
     Dosage: 25MG DAILY X19D/28D ORALLY
     Route: 048
     Dates: start: 20100901
  4. DEXAMETHASONE [Concomitant]
  5. SIMVASTATIN [Concomitant]
  6. FAMOTIDINE [Concomitant]
  7. ALPRAZOLAM [Concomitant]

REACTIONS (5)
  - DEEP VEIN THROMBOSIS [None]
  - DRUG INEFFECTIVE [None]
  - HYPOAESTHESIA [None]
  - HYPOAESTHESIA ORAL [None]
  - PNEUMONIA [None]
